FAERS Safety Report 7396070-1 (Version None)
Quarter: 2011Q2

REPORT INFORMATION
  Report Type: 
  Country: None (occurrence: None)
  Receive Date: 20110406
  Receipt Date: 20110328
  Transmission Date: 20111010
  Serious: Yes (Other)
  Sender: FDA-Public Use
  Company Number: FR-ELI_LILLY_AND_COMPANY-FR201103008061

PATIENT
  Sex: Female

DRUGS (6)
  1. ZYPREXA [Suspect]
     Dosage: 10 MG, QD
  2. TERCIAN [Concomitant]
     Dosage: 30 DF, QD
     Dates: end: 20101201
  3. XANAX [Concomitant]
     Dosage: 4 MG, QD
     Dates: end: 20110115
  4. LEVOTHYROX [Concomitant]
     Dosage: UNK
     Dates: end: 20110115
  5. FLIXOTIDE [Concomitant]
     Dosage: UNK
     Dates: end: 20110115
  6. PROZAC [Suspect]
     Dosage: 20 MG, QD
     Dates: end: 20101201

REACTIONS (2)
  - DRUG EXPOSURE DURING PREGNANCY [None]
  - ABORTION INDUCED [None]
